FAERS Safety Report 8132384-5 (Version None)
Quarter: 2012Q1

REPORT INFORMATION
  Report Type: 
  Country: None (occurrence: None)
  Receive Date: 20120213
  Receipt Date: 20120201
  Transmission Date: 20120608
  Serious: Yes (Hospitalization)
  Sender: FDA-Public Use
  Company Number: US-ELI_LILLY_AND_COMPANY-US201202000794

PATIENT
  Age: 76 Year
  Sex: Female

DRUGS (6)
  1. PREDNISONE TAB [Concomitant]
     Dosage: UNK, UNKNOWN
     Route: 065
  2. CHERATUSSIN AC [Concomitant]
     Indication: COUGH
     Dosage: UNK, UNKNOWN
     Route: 065
  3. CEFPODOXIME PROXETIL [Concomitant]
     Dosage: 200 MG, UNKNOWN
     Route: 065
  4. FORTEO [Suspect]
     Indication: OSTEOPOROSIS
     Dosage: 20 UG, QD
     Route: 065
     Dates: start: 20111205
  5. GUAIFENESIN [Concomitant]
     Indication: COUGH
     Dosage: UNK, UNKNOWN
     Route: 065
  6. PROVENTIL [Concomitant]
     Dosage: UNK, UNKNOWN
     Route: 065

REACTIONS (5)
  - COUGH [None]
  - WHEEZING [None]
  - LUNG DISORDER [None]
  - DYSPNOEA [None]
  - ASTHMA [None]
